FAERS Safety Report 4304402-3 (Version None)
Quarter: 2004Q1

REPORT INFORMATION
  Report Type: 
  Country: None (occurrence: None)
  Receive Date: 20040224
  Receipt Date: 20040212
  Transmission Date: 20041129
  Serious: Yes (Death, Life-Threatening, Hospitalization)
  Sender: FDA-Public Use
  Company Number: 163-20785-04020373

PATIENT
  Age: 60 Year
  Sex: Male

DRUGS (6)
  1. THALOMID [Suspect]
     Indication: RENAL CANCER METASTATIC
     Dosage: ORAL
     Route: 048
     Dates: start: 20040205, end: 20040210
  2. INTERLEUKIN-2 (INTERLEUKIN-2) [Suspect]
     Indication: RENAL CANCER METASTATIC
     Dates: start: 20040205, end: 20040210
  3. ATENOLOL [Concomitant]
  4. ALLOPURINOL [Concomitant]
  5. ASPIRIN [Concomitant]
  6. MULTIVIMTAIN (MULTIVITAMINS) [Concomitant]

REACTIONS (32)
  - AGITATION [None]
  - BLADDER DISTENSION [None]
  - BLOOD BICARBONATE DECREASED [None]
  - BLOOD CREATININE INCREASED [None]
  - BLOOD GASES ABNORMAL [None]
  - BLOOD PH DECREASED [None]
  - BLOOD PRESSURE DECREASED [None]
  - BLOOD UREA INCREASED [None]
  - CAPILLARY LEAK SYNDROME [None]
  - CHILLS [None]
  - CONFUSIONAL STATE [None]
  - DIARRHOEA [None]
  - DISORIENTATION [None]
  - HAEMATOCRIT DECREASED [None]
  - HAEMOGLOBIN DECREASED [None]
  - HYPERKALAEMIA [None]
  - LUNG DISORDER [None]
  - MENTAL STATUS CHANGES [None]
  - METABOLIC ACIDOSIS [None]
  - NAUSEA [None]
  - PCO2 DECREASED [None]
  - PITTING OEDEMA [None]
  - PO2 INCREASED [None]
  - PULMONARY OEDEMA [None]
  - PYREXIA [None]
  - RALES [None]
  - RENAL FAILURE ACUTE [None]
  - RESIDUAL URINE VOLUME [None]
  - RESPIRATORY DISTRESS [None]
  - RESPIRATORY FAILURE [None]
  - WHEEZING [None]
  - WHITE BLOOD CELL COUNT INCREASED [None]
